FAERS Safety Report 4293944-5 (Version None)
Quarter: 2004Q1

REPORT INFORMATION
  Report Type: 
  Country: None (occurrence: None)
  Receive Date: 20040212
  Receipt Date: 20040212
  Transmission Date: 20041129
  Serious: Yes (Hospitalization)
  Sender: FDA-Public Use
  Company Number: None

PATIENT
  Age: 74 Year
  Sex: Female
  Weight: 55.9285 kg

DRUGS (6)
  1. MORPHINE SULFATE [Suspect]
     Dosage: 30 MG TWICE DAILY ORAL
     Route: 048
     Dates: start: 20030410, end: 20040209
  2. DARVOCET-N 100 [Suspect]
     Dosage: 650 /100 MG EVERY 4 H ORAL
     Route: 048
     Dates: start: 20030410, end: 20040209
  3. IMDUR [Concomitant]
  4. TOPROL-XL [Concomitant]
  5. XANAX [Concomitant]
  6. CRESTOR [Concomitant]

REACTIONS (1)
  - INAPPROPRIATE ANTIDIURETIC HORMONE SECRETION [None]
